FAERS Safety Report 20703670 (Version 2)
Quarter: 2022Q2

REPORT INFORMATION
  Report Type: Spontaneous
  Country: EC (occurrence: EC)
  Receive Date: 20220413
  Receipt Date: 20220530
  Transmission Date: 20220721
  Serious: Yes (Death)
  Sender: FDA-Public Use
  Company Number: EC-KOREA IPSEN Pharma-2022-10272

PATIENT
  Age: 84 Year
  Sex: Male

DRUGS (8)
  1. DYSPORT [Suspect]
     Active Substance: ABOBOTULINUMTOXINA
     Indication: Muscle spasticity
     Dosage: 1000 UNITS
     Route: 030
     Dates: start: 20210921, end: 20210921
  2. CARBAMAZEPINE [Concomitant]
     Active Substance: CARBAMAZEPINE
  3. CARBIDOPA AND LEVODOPA [Concomitant]
     Active Substance: CARBIDOPA\LEVODOPA
  4. SPIRON [Concomitant]
     Dosage: SIX DROPS BEFORE BEDTIME
  5. QUETIAPINE [Concomitant]
     Active Substance: QUETIAPINE
     Dosage: ONE TABLET AT NIGHT
  6. VITAMIN B COMPLEX [Concomitant]
     Active Substance: CYANOCOBALAMIN\DEXPANTHENOL\NIACINAMIDE\PYRIDOXINE HYDROCHLORIDE\RIBOFLAVIN 5^-PHOSPHATE SODIUM\THIA
     Dosage: ONE TABLET AT 10 AM
  7. FOLIC ACID [Concomitant]
     Active Substance: FOLIC ACID
     Dosage: ONE TABLET 10 AM
  8. IRON [Concomitant]
     Active Substance: IRON
     Dosage: ONE AFTER BREAKFAST

REACTIONS (1)
  - Myocardial infarction [Fatal]

NARRATIVE: CASE EVENT DATE: 20211127
